FAERS Safety Report 4269652-3 (Version None)
Quarter: 2004Q1

REPORT INFORMATION
  Report Type: 
  Country: None (occurrence: None)
  Receive Date: 20040112
  Receipt Date: 20031229
  Transmission Date: 20041129
  Serious: Yes (Other)
  Sender: FDA-Public Use
  Company Number: FI-JNJFOC-20030707423

PATIENT
  Sex: Male

DRUGS (4)
  1. REMICADE [Suspect]
     Indication: RHEUMATOID ARTHRITIS
     Dosage: INTRAVENOUS
     Route: 042
     Dates: start: 20030619, end: 20030619
  2. PLACEBO (PLACEBO) LYOPHILIZED POWDER [Suspect]
     Indication: RHEUMATOID ARTHRITIS
     Dates: start: 20030619, end: 20030619
  3. PREDNISOLONE [Concomitant]
  4. ROFECOXIB [Concomitant]

REACTIONS (4)
  - AGRANULOCYTOSIS [None]
  - ORAL FUNGAL INFECTION [None]
  - PHARYNGITIS [None]
  - SEPSIS [None]
